FAERS Safety Report 22271107 (Version 1)
Quarter: 2023Q2

REPORT INFORMATION
  Report Type: Spontaneous
  Country: US (occurrence: None)
  Receive Date: 20230428
  Receipt Date: 20230428
  Transmission Date: 20230722
  Serious: Yes (Life-Threatening)
  Sender: FDA-Public Use
  Company Number: None

PATIENT
  Age: 64 Year
  Sex: Male

DRUGS (1)
  1. TEMOZOLOMIDE [Suspect]
     Active Substance: TEMOZOLOMIDE
     Dosage: FREQUENCY : EVERY OTHER WEEK;?
     Route: 048

REACTIONS (4)
  - Chest pain [None]
  - Asthenia [None]
  - Off label use [None]
  - Therapy interrupted [None]

NARRATIVE: CASE EVENT DATE: 20230415
